FAERS Safety Report 7296700-9 (Version None)
Quarter: 2011Q1

REPORT INFORMATION
  Report Type: 
  Country: None (occurrence: None)
  Receive Date: 20110216
  Receipt Date: 20110207
  Transmission Date: 20110831
  Serious: Yes (Hospitalization)
  Sender: FDA-Public Use
  Company Number: US-ASTRAZENECA-2006UW24329

PATIENT
  Age: 81 Year
  Sex: Female
  Weight: 88.5 kg

DRUGS (9)
  1. LISINOPRIL [Concomitant]
  2. MECLIZINE [Concomitant]
  3. NEXIUM [Suspect]
     Indication: GASTROOESOPHAGEAL REFLUX DISEASE
     Route: 048
     Dates: start: 20040101, end: 20060101
  4. CELEBREX [Concomitant]
  5. VERAPAMIL [Concomitant]
  6. LOVASTATIN [Concomitant]
  7. LEVOXYL [Concomitant]
  8. NEXIUM [Suspect]
     Dosage: 40 MG
     Route: 048
  9. LORAZEPAM [Concomitant]

REACTIONS (8)
  - EAR DISORDER [None]
  - SHOULDER ARTHROPLASTY [None]
  - HIP ARTHROPLASTY [None]
  - CERUMEN IMPACTION [None]
  - PAIN [None]
  - HEADACHE [None]
  - HERPES ZOSTER [None]
  - GASTROOESOPHAGEAL REFLUX DISEASE [None]
